FAERS Safety Report 16765478 (Version 3)
Quarter: 2019Q3

REPORT INFORMATION
  Report Type: Report from Study
  Country: FR (occurrence: FR)
  Receive Date: 20190903
  Receipt Date: 20190921
  Transmission Date: 20191005
  Serious: Yes (Other)
  Sender: FDA-Public Use
  Company Number: FR-AUROBINDO-AUR-APL-2019-057388

PATIENT
  Age: 18 Year
  Sex: Female

DRUGS (17)
  1. VANCOMYCIN [Concomitant]
     Active Substance: VANCOMYCIN
     Indication: ENTEROCOCCAL INFECTION
     Dosage: 15 MILLIGRAM/KILOGRAM, LOADING DOSE
     Route: 042
  2. GENTAMICIN. [Concomitant]
     Active Substance: GENTAMICIN
     Indication: EVIDENCE BASED TREATMENT
  3. CEFEPIME [Concomitant]
     Active Substance: CEFEPIME HYDROCHLORIDE
     Indication: ENTEROCOCCAL INFECTION
     Dosage: 2 GRAM, LOADING DOSE
     Route: 042
  4. CEFEPIME [Concomitant]
     Active Substance: CEFEPIME HYDROCHLORIDE
     Indication: EVIDENCE BASED TREATMENT
  5. AMOXICILLIN. [Suspect]
     Active Substance: AMOXICILLIN
     Indication: ANTIBIOTIC THERAPY
  6. VANCOMYCIN [Concomitant]
     Active Substance: VANCOMYCIN
     Indication: ESCHERICHIA INFECTION
     Dosage: 30 MILLIGRAM/KILOGRAM, DAILY, MAINTENANCE DOSE; FOR A TOTAL OF 7 DAYS
     Route: 042
  7. AMOXICILLIN. [Suspect]
     Active Substance: AMOXICILLIN
     Indication: ENTEROCOCCAL INFECTION
     Dosage: UNK, PRESCRIBED FOR 6 WEEKS
     Route: 048
  8. RIFAMPICIN [Suspect]
     Active Substance: RIFAMPIN
     Indication: ESCHERICHIA INFECTION
  9. RIFAMPICIN [Suspect]
     Active Substance: RIFAMPIN
     Indication: ANTIBIOTIC THERAPY
  10. VANCOMYCIN [Concomitant]
     Active Substance: VANCOMYCIN
     Indication: EVIDENCE BASED TREATMENT
  11. RIFAMPICIN [Suspect]
     Active Substance: RIFAMPIN
     Indication: ENTEROCOCCAL INFECTION
     Dosage: UNK, PRESCRIBED FOR 6 WEEKS
     Route: 048
  12. CEFEPIME [Concomitant]
     Active Substance: CEFEPIME HYDROCHLORIDE
     Indication: ESCHERICHIA INFECTION
     Dosage: 100 MILLIGRAM/KILOGRAM, DAILY, MAINTENANCE DOSE; FOR A TOTAL OF 7 DAYS
     Route: 042
  13. GENTAMICIN. [Concomitant]
     Active Substance: GENTAMICIN
     Indication: ESCHERICHIA INFECTION
     Dosage: UNK
     Route: 065
  14. CEFEPIME [Concomitant]
     Active Substance: CEFEPIME HYDROCHLORIDE
     Indication: ANTIBIOTIC THERAPY
  15. GENTAMICIN. [Concomitant]
     Active Substance: GENTAMICIN
     Indication: ANTIBIOTIC THERAPY
  16. AMOXICILLIN. [Suspect]
     Active Substance: AMOXICILLIN
     Indication: ESCHERICHIA INFECTION
  17. GENTAMICIN. [Concomitant]
     Active Substance: GENTAMICIN
     Indication: ENTEROCOCCAL INFECTION
     Dosage: 5 MILLIGRAM/KILOGRAM, DAILY, PRESCRIBED FOR 7 DAYS
     Route: 042

REACTIONS (3)
  - Treatment failure [Unknown]
  - Bacillus infection [Unknown]
  - Product use in unapproved indication [Unknown]
